FAERS Safety Report 15783536 (Version 1)
Quarter: 2019Q1

REPORT INFORMATION
  Report Type: Report from Study
  Country: CA (occurrence: CA)
  Receive Date: 20190102
  Receipt Date: 20190102
  Transmission Date: 20190417
  Serious: Yes (Other)
  Sender: FDA-Public Use
  Company Number: PHHY2015CA071872

PATIENT
  Age: 37 Year
  Sex: Female

DRUGS (23)
  1. XOLAIR [Suspect]
     Active Substance: OMALIZUMAB
     Dosage: UNK
     Route: 058
     Dates: start: 20160512
  2. XOLAIR [Suspect]
     Active Substance: OMALIZUMAB
     Dosage: 300 MG, EVERY 4 WEEKS
     Route: 058
     Dates: start: 2016
  3. XOLAIR [Suspect]
     Active Substance: OMALIZUMAB
     Dosage: UNK
     Route: 058
     Dates: start: 20170413
  4. XOLAIR [Suspect]
     Active Substance: OMALIZUMAB
     Dosage: UNK
     Route: 058
     Dates: start: 20170706
  5. XOLAIR [Suspect]
     Active Substance: OMALIZUMAB
     Indication: CHRONIC SPONTANEOUS URTICARIA
     Dosage: 300 MG, (EVERY 4 WEEKS)
     Route: 058
     Dates: start: 20150513
  6. XOLAIR [Suspect]
     Active Substance: OMALIZUMAB
     Dosage: UNK
     Route: 058
     Dates: start: 20151029
  7. XOLAIR [Suspect]
     Active Substance: OMALIZUMAB
     Dosage: 300 MG, UNK
     Route: 058
  8. XOLAIR [Suspect]
     Active Substance: OMALIZUMAB
     Dosage: UNK
     Route: 058
     Dates: start: 20160414
  9. ANGELIQ [Concomitant]
     Active Substance: DROSPIRENONE\ESTRADIOL
     Indication: PRODUCT USED FOR UNKNOWN INDICATION
     Route: 065
  10. XOLAIR [Suspect]
     Active Substance: OMALIZUMAB
     Dosage: UNK
     Route: 058
     Dates: start: 20160928
  11. XOLAIR [Suspect]
     Active Substance: OMALIZUMAB
     Dosage: 300 MG, EVERY 4 WEEKS (INSTEAD OF 450 MG, EVERY 4 WEEKS)
     Route: 058
     Dates: start: 20170807
  12. PANTOLOC [Concomitant]
     Active Substance: PANTOPRAZOLE SODIUM
     Indication: PRODUCT USED FOR UNKNOWN INDICATION
     Route: 065
  13. XOLAIR [Suspect]
     Active Substance: OMALIZUMAB
     Dosage: 300 MG, ONCE IN 4 WEEKS
     Route: 058
     Dates: start: 20161124, end: 20161124
  14. DOXEPINE [Concomitant]
     Active Substance: DOXEPIN
     Indication: PRODUCT USED FOR UNKNOWN INDICATION
     Route: 065
  15. XOLAIR [Suspect]
     Active Substance: OMALIZUMAB
     Dosage: UNK
     Route: 058
     Dates: start: 20150709
  16. LORAZEPAM. [Suspect]
     Active Substance: LORAZEPAM
     Indication: PRODUCT USED FOR UNKNOWN INDICATION
     Route: 065
  17. XOLAIR [Suspect]
     Active Substance: OMALIZUMAB
     Dosage: 150 MG EVERY 4 WEEKS
     Route: 058
  18. XOLAIR [Suspect]
     Active Substance: OMALIZUMAB
     Dosage: 300 MG, ONCE IN 4 WEEKS
     Route: 058
     Dates: start: 2015
  19. XOLAIR [Suspect]
     Active Substance: OMALIZUMAB
     Dosage: 300 MG, EVERY 4 WEEKS
     Route: 058
     Dates: start: 20151223
  20. XOLAIR [Suspect]
     Active Substance: OMALIZUMAB
     Dosage: UNK
     Route: 058
     Dates: start: 20160218
  21. XOLAIR [Suspect]
     Active Substance: OMALIZUMAB
     Dosage: UNK
     Route: 058
     Dates: start: 20161026
  22. XOLAIR [Suspect]
     Active Substance: OMALIZUMAB
     Indication: CHRONIC SPONTANEOUS URTICARIA
     Dosage: 450 MG, EVERY 4 WEEKS
     Route: 058
     Dates: start: 20181129
  23. REACTINE [CETIRIZINE HYDROCHLORIDE] [Concomitant]
     Active Substance: CETIRIZINE HYDROCHLORIDE
     Indication: PRODUCT USED FOR UNKNOWN INDICATION
     Route: 065

REACTIONS (40)
  - Feeling abnormal [Unknown]
  - Abdominal discomfort [Recovered/Resolved]
  - Dyspnoea [Unknown]
  - Urticaria thermal [Unknown]
  - Fatigue [Unknown]
  - Injection site pain [Recovered/Resolved]
  - Urticaria physical [Recovered/Resolved]
  - Angioedema [Unknown]
  - Impaired healing [Unknown]
  - Oropharyngeal pain [Recovering/Resolving]
  - Syncope [Recovered/Resolved]
  - Sensitivity to weather change [Unknown]
  - Nasopharyngitis [Unknown]
  - Incorrect dose administered [Unknown]
  - Mechanical urticaria [Unknown]
  - Dysmenorrhoea [Unknown]
  - Fatigue [Recovered/Resolved]
  - Injection site swelling [Recovered/Resolved]
  - Eye irritation [Unknown]
  - Breast discomfort [Recovered/Resolved]
  - Rash generalised [Not Recovered/Not Resolved]
  - Dizziness [Recovered/Resolved]
  - Wheezing [Unknown]
  - Urticaria [Not Recovered/Not Resolved]
  - Nausea [Recovered/Resolved]
  - Haematochezia [Recovered/Resolved]
  - Pulmonary congestion [Recovered/Resolved]
  - Skin oedema [Unknown]
  - Muscle tightness [Recovering/Resolving]
  - Hypoaesthesia oral [Recovered/Resolved]
  - Aggression [Unknown]
  - Burning sensation [Unknown]
  - Stress at work [Unknown]
  - Bronchitis [Recovering/Resolving]
  - Sinusitis [Recovering/Resolving]
  - Diarrhoea [Unknown]
  - Injury [Unknown]
  - Injection site pain [Unknown]
  - Alopecia [Unknown]
  - Injection site erythema [Recovered/Resolved]

NARRATIVE: CASE EVENT DATE: 2015
